FAERS Safety Report 8675476 (Version 3)
Quarter: 2013Q2

REPORT INFORMATION
  Report Type: Report from Study
  Country: US (occurrence: US)
  Receive Date: 20120720
  Receipt Date: 20130513
  Transmission Date: 20140414
  Serious: Yes (Hospitalization)
  Sender: FDA-Public Use
  Company Number: US-ROCHE-1085964

PATIENT
  Age: 37 Year
  Sex: Female
  Weight: 82.17 kg

DRUGS (13)
  1. TRASTUZUMAB [Suspect]
     Indication: BREAST CANCER
     Dosage: LAST DOSE PRIOR TO SAE ON 25/JUN/2012
     Route: 042
     Dates: start: 20120423
  2. DOCETAXEL [Suspect]
     Indication: BREAST CANCER
     Dosage: DATE OF LAST DOSE PRIOR TO SAE: 25/JUN/2012,DOSE:147MG
     Route: 042
     Dates: start: 20120423
  3. CARBOPLATIN [Suspect]
     Indication: BREAST CANCER
     Dosage: LAST DOPSE PRIOR TO SAE ON 25/JUN/2012
     Route: 042
     Dates: start: 20120423
  4. KEPPRA [Concomitant]
     Route: 065
     Dates: start: 20120216
  5. ATIVAN [Concomitant]
     Route: 065
     Dates: start: 20120216
  6. VALIUM [Concomitant]
     Route: 065
     Dates: start: 20120320
  7. DECADRON [Concomitant]
     Route: 065
     Dates: start: 20120422
  8. LOMOTIL [Concomitant]
     Route: 065
     Dates: start: 20120514
  9. ZOFRAN [Concomitant]
     Route: 065
     Dates: start: 20120514
  10. PERCOCET [Concomitant]
     Dosage: 30/1950 MG
     Route: 065
     Dates: start: 20120530
  11. CETRIZINE (UNK INGREDIENTS) [Concomitant]
     Dosage: 1-2 TABLETS
     Route: 065
     Dates: start: 20120620
  12. NEULASTA [Concomitant]
     Dosage: DAILY
     Route: 065
     Dates: start: 20120515
  13. PERTUZUMAB [Suspect]
     Indication: BREAST CANCER
     Dosage: LAST DOSE PRIOR TO SAE ON 25/JUN/2012
     Route: 042
     Dates: start: 20120423

REACTIONS (2)
  - Dehydration [Recovered/Resolved]
  - Clostridium difficile colitis [Recovered/Resolved]
